FAERS Safety Report 11303098 (Version 2)
Quarter: 2015Q3

REPORT INFORMATION
  Report Type: Other
  Country: GB (occurrence: GB)
  Receive Date: 20150723
  Receipt Date: 20150814
  Transmission Date: 20151125
  Serious: Yes (Death, Other)
  Sender: FDA-Public Use
  Company Number: GB-PERRIGO-15GB007449

PATIENT
  Age: 76 Year
  Sex: Male

DRUGS (3)
  1. GINKGO BILOBA [Suspect]
     Active Substance: GINKGO
     Indication: BACK PAIN
     Dosage: UNK
     Route: 048
     Dates: start: 20150616, end: 20150620
  2. COCODAMOL [Concomitant]
     Active Substance: ACETAMINOPHEN\CODEINE PHOSPHATE
     Indication: PRODUCT USED FOR UNKNOWN INDICATION
     Dosage: UNK
     Route: 065
  3. IBUPROFEN 16028/0027 200 MG [Suspect]
     Active Substance: IBUPROFEN
     Indication: BACK PAIN
     Dosage: UNK
     Route: 048
     Dates: start: 20150616, end: 20150620

REACTIONS (3)
  - Septic shock [Not Recovered/Not Resolved]
  - Immune thrombocytopenic purpura [Fatal]
  - Pneumonia [Not Recovered/Not Resolved]

NARRATIVE: CASE EVENT DATE: 20150620
